FAERS Safety Report 12787312 (Version 1)
Quarter: 2016Q3

REPORT INFORMATION
  Report Type: Spontaneous
  Country: US (occurrence: US)
  Receive Date: 20160927
  Receipt Date: 20160927
  Transmission Date: 20161109
  Serious: No
  Sender: FDA-Public Use
  Company Number: US-ORCHID HEALTHCARE-1057784

PATIENT
  Age: 50 Year
  Sex: Male
  Weight: 86.36 kg

DRUGS (3)
  1. SUMATRIPTAN. [Suspect]
     Active Substance: SUMATRIPTAN
     Indication: MIGRAINE
     Route: 048
     Dates: start: 201507
  2. TRAMADOL. [Suspect]
     Active Substance: TRAMADOL
     Route: 065
  3. AMITRIPTYLINE HYDROCHLORIDE. [Suspect]
     Active Substance: AMITRIPTYLINE HYDROCHLORIDE
     Route: 065

REACTIONS (1)
  - Urine alcohol test positive [Unknown]

NARRATIVE: CASE EVENT DATE: 20151116
